FAERS Safety Report 5630378-2 (Version None)
Quarter: 2008Q1

REPORT INFORMATION
  Report Type: 
  Country: None (occurrence: None)
  Receive Date: 20080219
  Receipt Date: 20080207
  Transmission Date: 20080703
  Serious: Yes (Hospitalization, Other)
  Sender: FDA-Public Use
  Company Number: PHHY2008NZ00870

PATIENT
  Sex: Male

DRUGS (3)
  1. RISPERIDONE [Concomitant]
     Dates: end: 20071201
  2. CLOZARIL [Suspect]
     Indication: SCHIZOPHRENIA
     Dosage: 350
     Route: 048
     Dates: start: 20030101
  3. CLOZARIL [Suspect]
     Dosage: UNK, UNK
     Route: 048
     Dates: start: 20071220

REACTIONS (1)
  - URINARY TRACT OBSTRUCTION [None]
